FAERS Safety Report 22316733 (Version 1)
Quarter: 2023Q2

REPORT INFORMATION
  Report Type: Report from Study
  Country: US (occurrence: US)
  Receive Date: 20230513
  Receipt Date: 20230513
  Transmission Date: 20230722
  Serious: No
  Sender: FDA-Public Use
  Company Number: US-002147023-NVSC2023US107550

PATIENT
  Sex: Male
  Weight: 131.52 kg

DRUGS (4)
  1. ATORVASTATIN [Suspect]
     Active Substance: ATORVASTATIN
     Indication: Product used for unknown indication
     Dosage: UNK
     Route: 065
  2. ENALAPRIL [Suspect]
     Active Substance: ENALAPRIL
     Indication: Product used for unknown indication
     Dosage: UNK
     Route: 065
  3. SERTRALINE [Suspect]
     Active Substance: SERTRALINE HYDROCHLORIDE
     Indication: Product used for unknown indication
     Dosage: UNK
     Route: 065
  4. SULFAMETHOXAZOLE [Suspect]
     Active Substance: SULFAMETHOXAZOLE
     Indication: Dermatitis atopic
     Dosage: UNK
     Route: 065

REACTIONS (7)
  - Dermatitis atopic [Unknown]
  - Psoriasis [Unknown]
  - Seborrhoeic keratosis [Unknown]
  - Photosensitivity reaction [Unknown]
  - Skin lesion [Unknown]
  - Melanocytic naevus [Unknown]
  - Skin discolouration [Unknown]
